FAERS Safety Report 15359710 (Version 2)
Quarter: 2020Q2

REPORT INFORMATION
  Report Type: Spontaneous
  Country: US (occurrence: US)
  Receive Date: 20180907
  Receipt Date: 20200526
  Transmission Date: 20200713
  Serious: Yes (Hospitalization, Other)
  Sender: FDA-Public Use
  Company Number: US-ASTRAZENECA-2018SF11852

PATIENT
  Sex: Male
  Weight: 78.5 kg

DRUGS (46)
  1. TEMAZEPAM. [Concomitant]
     Active Substance: TEMAZEPAM
     Indication: SLEEP DISORDER
     Route: 065
     Dates: start: 201006, end: 201007
  2. THEOPHYLLINE [Concomitant]
     Active Substance: THEOPHYLLINE ANHYDROUS
     Route: 065
     Dates: start: 20150805
  3. CELEBREX [Concomitant]
     Active Substance: CELECOXIB
     Route: 065
     Dates: start: 20130701
  4. DIAZEPAM. [Concomitant]
     Active Substance: DIAZEPAM
     Indication: ANXIETY
     Route: 065
     Dates: start: 201001, end: 201512
  5. NYSTATIN. [Concomitant]
     Active Substance: NYSTATIN
     Indication: ANTIFUNGAL TREATMENT
     Route: 065
     Dates: start: 201104, end: 201510
  6. CIPROFLOXACIN. [Concomitant]
     Active Substance: CIPROFLOXACIN
     Route: 065
     Dates: start: 20161208
  7. POTASSIUM CHLORIDE. [Concomitant]
     Active Substance: POTASSIUM CHLORIDE
     Route: 065
     Dates: start: 20161014
  8. FLOVENT [Concomitant]
     Active Substance: FLUTICASONE PROPIONATE
     Route: 065
     Dates: start: 20151120
  9. METHYLPREDNISOLONE. [Concomitant]
     Active Substance: METHYLPREDNISOLONE
     Route: 065
     Dates: start: 20150810
  10. FERROUS SULFATE. [Concomitant]
     Active Substance: FERROUS SULFATE
     Route: 065
     Dates: start: 20140801
  11. NEXIUM [Suspect]
     Active Substance: ESOMEPRAZOLE MAGNESIUM
     Indication: GASTROOESOPHAGEAL REFLUX DISEASE
     Dosage: GENERIC
     Route: 065
     Dates: start: 201507, end: 201603
  12. FUROSEMIDE. [Concomitant]
     Active Substance: FUROSEMIDE
     Indication: DIURETIC THERAPY
     Route: 065
     Dates: start: 201001, end: 201508
  13. TRICOR [Concomitant]
     Active Substance: FENOFIBRATE
     Indication: BLOOD CHOLESTEROL
     Route: 065
     Dates: start: 201010, end: 201208
  14. TRAMADOL. [Concomitant]
     Active Substance: TRAMADOL
     Indication: PAIN
     Route: 065
     Dates: start: 201106, end: 201305
  15. ALPRAZOLAM. [Concomitant]
     Active Substance: ALPRAZOLAM
     Indication: ANXIETY
     Route: 065
     Dates: start: 201002, end: 201209
  16. AMOXICILLIN. [Concomitant]
     Active Substance: AMOXICILLIN
     Route: 065
     Dates: start: 20170111
  17. DIPHENOXYLATE-ATROP [Concomitant]
     Active Substance: ATROPINE SULFATE\DIPHENOXYLATE HYDROCHLORIDE
     Route: 065
     Dates: start: 20161208
  18. ANTIVERT [Concomitant]
     Active Substance: MECLIZINE HYDROCHLORIDE
     Route: 065
     Dates: start: 20110711
  19. NEXIUM [Suspect]
     Active Substance: ESOMEPRAZOLE MAGNESIUM
     Indication: GASTROOESOPHAGEAL REFLUX DISEASE
     Route: 048
     Dates: start: 2010, end: 2016
  20. LANSOPRAZOLE. [Suspect]
     Active Substance: LANSOPRAZOLE
     Indication: GASTROOESOPHAGEAL REFLUX DISEASE
     Route: 065
     Dates: start: 201010, end: 201011
  21. HYDROCODONE-ACETAMINO [Concomitant]
     Route: 065
     Dates: start: 20161213
  22. BUSPIRONE [Concomitant]
     Active Substance: BUSPIRONE HYDROCHLORIDE
     Route: 065
     Dates: start: 20151101
  23. DICLOFENAC [Concomitant]
     Active Substance: DICLOFENAC
     Route: 065
     Dates: start: 20160901
  24. PROMETHAZINE [Concomitant]
     Active Substance: PROMETHAZINE HYDROCHLORIDE
     Route: 065
     Dates: start: 20161208
  25. AVELOX [Concomitant]
     Active Substance: MOXIFLOXACIN HYDROCHLORIDE
     Route: 065
     Dates: start: 20131030
  26. NEXIUM [Suspect]
     Active Substance: ESOMEPRAZOLE MAGNESIUM
     Indication: GASTROOESOPHAGEAL REFLUX DISEASE
     Route: 048
     Dates: start: 20141219
  27. ROLAIDS [Concomitant]
     Active Substance: CALCIUM CARBONATE\MAGNESIUM HYDROXIDE
     Route: 065
     Dates: start: 2008, end: 2009
  28. CITALOPRAM [Concomitant]
     Active Substance: CITALOPRAM HYDROBROMIDE
     Route: 065
     Dates: start: 20170105
  29. CHLORZOXAZONE. [Concomitant]
     Active Substance: CHLORZOXAZONE
     Route: 065
     Dates: start: 20161203
  30. HYOSCYAMINE. [Concomitant]
     Active Substance: HYOSCYAMINE
     Route: 065
     Dates: start: 20160610
  31. BETAMETHASONE. [Concomitant]
     Active Substance: BETAMETHASONE
     Route: 065
     Dates: start: 20150805
  32. CEFDINIR. [Concomitant]
     Active Substance: CEFDINIR
     Route: 065
     Dates: start: 20131206
  33. NEXIUM [Suspect]
     Active Substance: ESOMEPRAZOLE MAGNESIUM
     Indication: GASTROOESOPHAGEAL REFLUX DISEASE
     Route: 048
     Dates: start: 20131202
  34. TIZANIDINE. [Concomitant]
     Active Substance: TIZANIDINE
     Indication: MUSCLE RELAXANT THERAPY
     Route: 065
     Dates: start: 201001, end: 201405
  35. PHENAZOPYRIDINE. [Concomitant]
     Active Substance: PHENAZOPYRIDINE
     Indication: PAIN
     Route: 065
     Dates: start: 201004, end: 201508
  36. PERPHENAZINE. [Concomitant]
     Active Substance: PERPHENAZINE
     Route: 065
     Dates: start: 20160114
  37. NEOMYCIN-POLYMIXIN [Concomitant]
     Route: 065
     Dates: start: 20141024
  38. LIDODERM [Concomitant]
     Active Substance: LIDOCAINE
     Route: 065
     Dates: start: 20130705
  39. NEXIUM [Suspect]
     Active Substance: ESOMEPRAZOLE MAGNESIUM
     Indication: GASTROOESOPHAGEAL REFLUX DISEASE
     Dosage: GENERIC
     Route: 065
     Dates: start: 20161220
  40. AMBIEN [Concomitant]
     Active Substance: ZOLPIDEM TARTRATE
     Indication: SLEEP DISORDER
     Route: 065
     Dates: start: 201009, end: 201404
  41. QUETIAPINE. [Concomitant]
     Active Substance: QUETIAPINE
     Indication: AFFECTIVE DISORDER
     Route: 065
     Dates: start: 201408, end: 201504
  42. CEFUROXIME. [Concomitant]
     Active Substance: CEFUROXIME
     Route: 065
     Dates: start: 20160422
  43. NEXIUM [Suspect]
     Active Substance: ESOMEPRAZOLE MAGNESIUM
     Indication: GASTROOESOPHAGEAL REFLUX DISEASE
     Route: 048
     Dates: start: 201001, end: 201607
  44. NEXIUM [Suspect]
     Active Substance: ESOMEPRAZOLE MAGNESIUM
     Indication: GASTROOESOPHAGEAL REFLUX DISEASE
     Route: 048
     Dates: start: 20120228
  45. GABAPENTIN. [Concomitant]
     Active Substance: GABAPENTIN
     Route: 065
     Dates: start: 20161222
  46. AZITHROMYCIN ANHYDROUS. [Concomitant]
     Active Substance: AZITHROMYCIN ANHYDROUS
     Route: 065
     Dates: start: 20131024

REACTIONS (3)
  - Renal failure [Unknown]
  - Acute kidney injury [Not Recovered/Not Resolved]
  - Chronic kidney disease [Not Recovered/Not Resolved]
